FAERS Safety Report 10156559 (Version 2)
Quarter: 2014Q2

REPORT INFORMATION
  Report Type: Spontaneous
  Country: US (occurrence: None)
  Receive Date: 20140505
  Receipt Date: 20140513
  Transmission Date: 20141212
  Serious: Yes (Disabling, Other)
  Sender: FDA-Public Use
  Company Number: 2014-19435

PATIENT
  Age: 76 Year
  Sex: Female

DRUGS (1)
  1. EYLEA [Suspect]
     Indication: AGE-RELATED MACULAR DEGENERATION
     Dosage: INTRAOCULAR
     Route: 031
     Dates: start: 20140408

REACTIONS (6)
  - Endophthalmitis [None]
  - Vitreous haemorrhage [None]
  - Pain [None]
  - Visual acuity reduced [None]
  - Vitrectomy [None]
  - Hypopyon [None]
